FAERS Safety Report 6565530-5 (Version None)
Quarter: 2010Q1

REPORT INFORMATION
  Report Type: 
  Country: None (occurrence: None)
  Receive Date: 20100201
  Receipt Date: 20100128
  Transmission Date: 20100710
  Serious: Yes (Hospitalization)
  Sender: FDA-Public Use
  Company Number: FR-WYE-G05456610

PATIENT
  Sex: Female
  Weight: 48 kg

DRUGS (3)
  1. RAPAMUNE [Suspect]
     Dosage: 0.5 MG TOTAL DAILY
     Route: 048
     Dates: start: 20070829, end: 20091101
  2. RAPAMUNE [Suspect]
     Dosage: UNKNOWN
     Route: 048
     Dates: start: 20091101, end: 20091201
  3. RAPAMUNE [Suspect]
     Route: 048
     Dates: start: 20091201

REACTIONS (9)
  - ABDOMINAL PAIN [None]
  - ALVEOLITIS [None]
  - BRONCHITIS [None]
  - CARDIAC FAILURE [None]
  - CLOSTRIDIUM DIFFICILE COLITIS [None]
  - ESCHERICHIA URINARY TRACT INFECTION [None]
  - FEMORAL NECK FRACTURE [None]
  - IMMUNOSUPPRESSANT DRUG LEVEL INCREASED [None]
  - PLEURAL EFFUSION [None]
